FAERS Safety Report 4503384-9 (Version None)
Quarter: 2004Q4

REPORT INFORMATION
  Report Type: 
  Country: None (occurrence: None)
  Receive Date: 20041117
  Receipt Date: 19980408
  Transmission Date: 20050328
  Serious: Yes (Other)
  Sender: FDA-Public Use
  Company Number: GB-GLAXOSMITHKLINE-B0055470A

PATIENT
  Age: 66 Year
  Sex: Female

DRUGS (8)
  1. ZOFRAN [Suspect]
     Dosage: 4MG TWICE PER DAY
     Route: 042
     Dates: start: 19980227
  2. CIPROXIN [Concomitant]
     Indication: INFECTION PROPHYLAXIS
     Dosage: 200MG TWICE PER DAY
     Route: 042
     Dates: start: 19980223, end: 19980228
  3. ZINACEF [Concomitant]
     Indication: INFECTION PROPHYLAXIS
     Dosage: 1.5G THREE TIMES PER DAY
     Route: 042
     Dates: start: 19980223, end: 19980228
  4. ISOFLURANE [Concomitant]
     Route: 055
     Dates: start: 19980227, end: 19980227
  5. PROPOFOL [Concomitant]
     Dosage: 20MG PER DAY
     Route: 042
     Dates: start: 19980227, end: 19980227
  6. GENTAMYCIN [Concomitant]
     Indication: PAIN
     Dates: start: 19980227, end: 19980227
  7. FENTANYL [Concomitant]
     Indication: PAIN
     Dates: start: 19980227, end: 19980227
  8. DF118 [Concomitant]
     Indication: PAIN
     Dates: start: 19980227, end: 19980227

REACTIONS (9)
  - CHEST DISCOMFORT [None]
  - COLD SWEAT [None]
  - CYANOSIS [None]
  - DYSPNOEA [None]
  - FEELING ABNORMAL [None]
  - HYPERSENSITIVITY [None]
  - PARAESTHESIA [None]
  - PULSE ABNORMAL [None]
  - VISUAL DISTURBANCE [None]
